FAERS Safety Report 8400392-2 (Version None)
Quarter: 2012Q2

REPORT INFORMATION
  Report Type: 
  Country: None (occurrence: None)
  Receive Date: 20120531
  Receipt Date: 20120524
  Transmission Date: 20120825
  Serious: Yes (Other)
  Sender: FDA-Public Use
  Company Number: TR-ABBOTT-12P-161-0939097-00

PATIENT
  Sex: Male
  Weight: 103 kg

DRUGS (1)
  1. HUMIRA [Suspect]
     Indication: ANKYLOSING SPONDYLITIS
     Route: 058
     Dates: start: 20111222, end: 20120524

REACTIONS (1)
  - TUBERCULIN TEST POSITIVE [None]
